FAERS Safety Report 19921123 (Version 4)
Quarter: 2021Q4

REPORT INFORMATION
  Report Type: Report from Study
  Country: DE (occurrence: DE)
  Receive Date: 20211006
  Receipt Date: 20211111
  Transmission Date: 20220303
  Serious: Yes (Other)
  Sender: FDA-Public Use
  Company Number: DE-CELLTRION INC.-2021DE013143

PATIENT

DRUGS (5)
  1. TRUXIMA [Suspect]
     Active Substance: RITUXIMAB-ABBS
     Indication: Marginal zone lymphoma
     Dosage: 375 MG/M2, DAY 1 EVERY CICLE OF INDUCTION
     Route: 042
     Dates: start: 20200508, end: 20210824
  2. TRUXIMA [Suspect]
     Active Substance: RITUXIMAB-ABBS
     Dosage: UNK, DAY 1 EVERY 8 WEEKS OF MAINTENANCE
  3. TRUXIMA [Suspect]
     Active Substance: RITUXIMAB-ABBS
     Dosage: 375 MG/M2
     Dates: start: 20211020
  4. COPANLISIB [Suspect]
     Active Substance: COPANLISIB
     Indication: Marginal zone lymphoma
     Dosage: 60 MG, EVERY DAY 1, 8, 15 EVERY CIRCLE OF INDUCTION
     Route: 042
     Dates: start: 20200508, end: 20211006
  5. COPANLISIB [Suspect]
     Active Substance: COPANLISIB
     Dosage: UNK, DAY 1, 15 EVERY CICLE OF MAINTENANCE
     Route: 042

REACTIONS (2)
  - Neutropenia [Not Recovered/Not Resolved]
  - Off label use [Unknown]

NARRATIVE: CASE EVENT DATE: 20210917
